FAERS Safety Report 6010211-X (Version None)
Quarter: 2008Q4

REPORT INFORMATION
  Report Type: 
  Country: None (occurrence: None)
  Receive Date: 20081218
  Receipt Date: 20071127
  Transmission Date: 20090506
  Serious: No
  Sender: FDA-Public Use
  Company Number: A0696050A

PATIENT
  Age: 68 Year
  Sex: Female

DRUGS (6)
  1. FLUTICASONE PROPIONATE [Suspect]
     Indication: INFECTION PROPHYLAXIS
     Dosage: 2SPR PER DAY
     Route: 045
  2. UNKNOWN MEDICATION [Concomitant]
  3. GLUCOSAMINE [Concomitant]
  4. POTASSIUM CHLORIDE [Concomitant]
  5. LOVAZA [Concomitant]
  6. RED YEAST RICE [Concomitant]

REACTIONS (3)
  - BURNING SENSATION [None]
  - DRUG INEFFECTIVE [None]
  - SINUSITIS [None]
